FAERS Safety Report 9156234 (Version 1)
Quarter: 2013Q1

REPORT INFORMATION
  Report Type: Spontaneous
  Country: FR (occurrence: FR)
  Receive Date: 20130215
  Receipt Date: 20130215
  Transmission Date: 20140127
  Serious: Yes (Other)
  Sender: FDA-Public Use
  Company Number: FR-RB-PR/991027/88

PATIENT
  Age: 24 Year
  Sex: Female

DRUGS (1)
  1. SUBUTEX [Suspect]
     Indication: DRUG DEPENDENCE
     Route: 060

REACTIONS (4)
  - Abortion induced [Recovered/Resolved]
  - Meningomyelocele [Recovered/Resolved]
  - Talipes [Recovered/Resolved]
  - Exposure during pregnancy [Recovered/Resolved]
